FAERS Safety Report 8230891-8 (Version None)
Quarter: 2012Q1

REPORT INFORMATION
  Report Type: 
  Country: None (occurrence: None)
  Receive Date: 20120321
  Receipt Date: 20120319
  Transmission Date: 20120608
  Serious: Yes (Hospitalization)
  Sender: FDA-Public Use
  Company Number: 9039997-2012-00013

PATIENT
  Age: 79 Year
  Sex: Male

DRUGS (1)
  1. LEVULAN KERASTICK TOPICAL SOLUTION 20 PERCENT [Suspect]
     Indication: ACTINIC KERATOSIS
     Dosage: 20 PERCENT, ONCE, TOPICAL
     Route: 061
     Dates: start: 20120208

REACTIONS (2)
  - LOSS OF CONSCIOUSNESS [None]
  - ROAD TRAFFIC ACCIDENT [None]
